FAERS Safety Report 7652881-6 (Version None)
Quarter: 2011Q3

REPORT INFORMATION
  Report Type: 
  Country: None (occurrence: None)
  Receive Date: 20110722
  Receipt Date: 20110609
  Transmission Date: 20111222
  Serious: No
  Sender: FDA-Public Use
  Company Number: 2011AL000050

PATIENT
  Age: 33 Year
  Sex: Female

DRUGS (3)
  1. FOLOTYN [Suspect]
     Dosage: IV
     Route: 042
     Dates: start: 20110201
  2. CYANOCOBALAMIN [Concomitant]
  3. FOLIC ACID [Concomitant]

REACTIONS (5)
  - PLATELET COUNT INCREASED [None]
  - STOMATITIS [None]
  - CATHETER SITE CELLULITIS [None]
  - ABDOMINAL PAIN UPPER [None]
  - RED BLOOD CELL COUNT DECREASED [None]
